FAERS Safety Report 8043703-2 (Version None)
Quarter: 2012Q1

REPORT INFORMATION
  Report Type: 
  Country: None (occurrence: None)
  Receive Date: 20120112
  Receipt Date: 20110608
  Transmission Date: 20120608
  Serious: Yes (Other)
  Sender: FDA-Public Use
  Company Number: PHEH2011US012960

PATIENT
  Sex: Female

DRUGS (2)
  1. EXJADE [Suspect]
     Dosage: UNK UKN, UNK
     Route: 048
  2. EXJADE [Suspect]
     Dosage: 250 MG, QD
     Route: 048

REACTIONS (1)
  - CROHN'S DISEASE [None]
